FAERS Safety Report 20455357 (Version 2)
Quarter: 2022Q1

REPORT INFORMATION
  Report Type: Report from Study
  Country: AU (occurrence: AU)
  Receive Date: 20220210
  Receipt Date: 20220323
  Transmission Date: 20220423
  Serious: Yes (Other)
  Sender: FDA-Public Use
  Company Number: AU-ABBVIE-22K-008-4239195-00

PATIENT
  Sex: Male

DRUGS (1)
  1. LEUPROLIDE ACETATE [Suspect]
     Active Substance: LEUPROLIDE ACETATE
     Indication: Prostate cancer
     Route: 030
     Dates: start: 20210705

REACTIONS (5)
  - Coronary artery occlusion [Recovering/Resolving]
  - Sciatica [Unknown]
  - Arthropathy [Recovering/Resolving]
  - Fall [Unknown]
  - Back pain [Unknown]
